FAERS Safety Report 4340517-1 (Version None)
Quarter: 2004Q2

REPORT INFORMATION
  Report Type: 
  Country: None (occurrence: None)
  Receive Date: 20040414
  Receipt Date: 20040401
  Transmission Date: 20050107
  Serious: Yes (Hospitalization)
  Sender: FDA-Public Use
  Company Number: 2004022288

PATIENT
  Sex: Female

DRUGS (1)
  1. ATARAX [Suspect]
     Indication: PRURITUS
     Dosage: 25 MG (DAILY)
     Dates: start: 20040224, end: 20040225

REACTIONS (3)
  - CAESAREAN SECTION [None]
  - COMPLICATIONS OF MATERNAL EXPOSURE TO THERAPEUTIC DRUGS [None]
  - MATERNAL DRUGS AFFECTING FOETUS [None]
